FAERS Safety Report 5217432-4 (Version None)
Quarter: 2007Q1

REPORT INFORMATION
  Report Type: 
  Country: None (occurrence: None)
  Receive Date: 20070124
  Receipt Date: 20060223
  Transmission Date: 20070707
  Serious: Yes (Other)
  Sender: FDA-Public Use
  Company Number: US-GLAXOSMITHKLINE-A0594965A

PATIENT
  Age: 40 Year
  Sex: Male

DRUGS (3)
  1. PAXIL CR [Suspect]
     Dosage: 20MG PER DAY
     Route: 048
     Dates: start: 20040201
  2. NEXIUM [Concomitant]
  3. VALIUM [Concomitant]

REACTIONS (3)
  - ANGER [None]
  - DIZZINESS [None]
  - PRESYNCOPE [None]
